FAERS Safety Report 9661809 (Version 2)
Quarter: 2013Q4

REPORT INFORMATION
  Report Type: Spontaneous
  Country: US (occurrence: US)
  Receive Date: 20131031
  Receipt Date: 20131031
  Transmission Date: 20140711
  Serious: No
  Sender: FDA-Public Use
  Company Number: US-PURDUE-USA-2010-0046691

PATIENT
  Sex: Female

DRUGS (2)
  1. OXYCONTIN (NDA 22-272) [Suspect]
     Indication: BACK PAIN
     Dosage: 400 MG, DAILY
     Dates: start: 201008
  2. OXYCONTIN (NDA 22-272) [Suspect]
     Indication: LUNG NEOPLASM

REACTIONS (10)
  - Abdominal pain upper [Unknown]
  - Headache [Unknown]
  - Nausea [Unknown]
  - Hot flush [Unknown]
  - Chills [Unknown]
  - Decreased appetite [Unknown]
  - Drug ineffective [Unknown]
  - Drug effect decreased [Unknown]
  - Quality of life decreased [Unknown]
  - Activities of daily living impaired [Unknown]
